FAERS Safety Report 7738991-3 (Version None)
Quarter: 2011Q3

REPORT INFORMATION
  Report Type: 
  Country: None (occurrence: None)
  Receive Date: 20110909
  Receipt Date: 20110830
  Transmission Date: 20111222
  Serious: No
  Sender: FDA-Public Use
  Company Number: US-BIOGENIDEC-2011BI033549

PATIENT
  Age: 36 Year
  Sex: Female

DRUGS (1)
  1. TYSABRI [Suspect]
     Indication: MULTIPLE SCLEROSIS
     Route: 042
     Dates: start: 20090811

REACTIONS (6)
  - DYSPNOEA [None]
  - ANXIETY [None]
  - MULTIPLE SCLEROSIS RELAPSE [None]
  - EYE SWELLING [None]
  - PRURITUS GENERALISED [None]
  - MUSCLE SPASMS [None]
